FAERS Safety Report 7802462-6 (Version None)
Quarter: 2011Q4

REPORT INFORMATION
  Report Type: 
  Country: None (occurrence: None)
  Receive Date: 20111007
  Receipt Date: 20111003
  Transmission Date: 20120403
  Serious: Yes (Death, Life-Threatening, Hospitalization, Disabling, Other)
  Sender: FDA-Public Use
  Company Number: US-GLAXOSMITHKLINE-A0942522A

PATIENT
  Age: 63 Year
  Sex: Female

DRUGS (13)
  1. PROMETHAZINE [Concomitant]
     Indication: NAUSEA
     Route: 048
  2. XOPENEX [Concomitant]
     Indication: CHRONIC OBSTRUCTIVE PULMONARY DISEASE
  3. FLEXERIL [Concomitant]
     Indication: MUSCLE SPASMS
     Route: 048
  4. ESTRADIOL [Concomitant]
     Indication: HORMONE REPLACEMENT THERAPY
     Route: 048
  5. ZOFRAN [Concomitant]
     Indication: NAUSEA
     Route: 048
  6. NEXIUM [Concomitant]
     Indication: ILL-DEFINED DISORDER
     Route: 048
  7. ASMANEX TWISTHALER [Concomitant]
     Indication: CHRONIC OBSTRUCTIVE PULMONARY DISEASE
     Route: 055
  8. MARINOL [Concomitant]
     Indication: PICA
     Route: 048
  9. PROZAC [Concomitant]
     Indication: DEPRESSION
     Route: 048
  10. HYCAMTIN [Suspect]
     Indication: SMALL CELL LUNG CANCER STAGE UNSPECIFIED
     Dosage: 220MCG PER DAY
     Route: 048
     Dates: start: 20091001, end: 20101201
  11. CODEINE SULFATE [Concomitant]
     Indication: COUGH
     Route: 048
  12. PROAIR HFA [Concomitant]
     Indication: CHRONIC OBSTRUCTIVE PULMONARY DISEASE
     Route: 055
  13. HYDROCODONE BITARTRATE [Concomitant]
     Indication: PAIN
     Route: 048

REACTIONS (1)
  - SMALL CELL LUNG CANCER STAGE UNSPECIFIED [None]
